FAERS Safety Report 10507830 (Version 1)
Quarter: 2014Q4

REPORT INFORMATION
  Report Type: Spontaneous
  Country: US (occurrence: None)
  Receive Date: 20141008
  Receipt Date: 20141008
  Transmission Date: 20150528
  Serious: Yes (Life-Threatening, Disabling)
  Sender: FDA-Public Use
  Company Number: None

PATIENT
  Age: 50 Year
  Sex: Male
  Weight: 90.72 kg

DRUGS (1)
  1. CLONAZEPAM. [Suspect]
     Active Substance: CLONAZEPAM
     Indication: PALPITATIONS
     Dosage: 1
     Route: 048

REACTIONS (3)
  - Drug withdrawal syndrome [None]
  - Somnolence [None]
  - Depression [None]

NARRATIVE: CASE EVENT DATE: 20141007
